FAERS Safety Report 18907084 (Version 1)
Quarter: 2021Q1

REPORT INFORMATION
  Report Type: Spontaneous
  Country: US (occurrence: US)
  Receive Date: 20210217
  Receipt Date: 20210217
  Transmission Date: 20210420
  Serious: No
  Sender: FDA-Public Use
  Company Number: US-009507513-2102USA004335

PATIENT
  Age: 25 Year
  Sex: Male

DRUGS (9)
  1. ERTAPENEM SODIUM [Concomitant]
     Active Substance: ERTAPENEM SODIUM
     Indication: BACTERIAL INFECTION
     Dosage: 1000 MILLIGRAM, Q24H
     Route: 042
  2. MEROPEN [Concomitant]
     Active Substance: MEROPENEM
     Indication: BACTERIAL INFECTION
     Dosage: 500 MILLIGRAM, Q6H
     Route: 042
  3. COLISTIN [Concomitant]
     Active Substance: COLISTIN
     Indication: BACTERIAL INFECTION
     Dosage: 150 MILLILITER, Q8H
  4. ZERBAXA [Suspect]
     Active Substance: CEFTOLOZANE SULFATE\TAZOBACTAM SODIUM
     Dosage: 3 G EVERY 8 H
     Route: 042
  5. MINOCYCLINE [Concomitant]
     Active Substance: MINOCYCLINE HYDROCHLORIDE
     Indication: PATHOGEN RESISTANCE
     Dosage: 100 MILLIGRAM, Q12H
     Route: 042
  6. POLYMYXIN B SULFATE. [Concomitant]
     Active Substance: POLYMYXIN B SULFATE
     Dosage: 800,000 UNITS EVERY 12H
     Route: 042
  7. MINOCYCLINE [Concomitant]
     Active Substance: MINOCYCLINE HYDROCHLORIDE
     Indication: ACINETOBACTER INFECTION
     Dosage: 200 MILLIGRAM, Q12H
     Route: 048
  8. ZERBAXA [Suspect]
     Active Substance: CEFTOLOZANE SULFATE\TAZOBACTAM SODIUM
     Indication: PNEUMONIA
     Dosage: 3 GRAM, Q8H
     Route: 042
  9. MICAFUNGIN. [Concomitant]
     Active Substance: MICAFUNGIN SODIUM
     Indication: FUNGAL INFECTION
     Dosage: 150 MILLIGRAM, Q24H
     Route: 042

REACTIONS (2)
  - Leukocytosis [Recovering/Resolving]
  - Treatment failure [Recovering/Resolving]
